FAERS Safety Report 11174223 (Version 5)
Quarter: 2015Q4

REPORT INFORMATION
  Report Type: Report from Study
  Country: US (occurrence: US)
  Receive Date: 20150609
  Receipt Date: 20151120
  Transmission Date: 20160304
  Serious: Yes (Other)
  Sender: FDA-Public Use
  Company Number: US-BIOGENIDEC-2015BI075171

PATIENT
  Age: 48 Year
  Sex: Female

DRUGS (17)
  1. CARAFATE [Concomitant]
     Active Substance: SUCRALFATE
     Route: 048
  2. HYDROCODONE/ACETAMINOPHEN [Concomitant]
     Active Substance: ACETAMINOPHEN\HYDROCODONE
  3. 4-AMINOPYRIDINE [Concomitant]
     Active Substance: DALFAMPRIDINE
  4. FENTANYL. [Concomitant]
     Active Substance: FENTANYL
  5. MIRTAZAPINE. [Concomitant]
     Active Substance: MIRTAZAPINE
  6. SIMVASTATIN. [Concomitant]
     Active Substance: SIMVASTATIN
  7. VARIVAX [Concomitant]
     Active Substance: VARICELLA-ZOSTER VIRUS STRAIN OKA/MERCK LIVE ANTIGEN
  8. TYSABRI [Suspect]
     Active Substance: NATALIZUMAB
     Indication: MULTIPLE SCLEROSIS
     Route: 042
     Dates: start: 20061117, end: 20150519
  9. VOLTAREN [Concomitant]
     Active Substance: DICLOFENAC SODIUM
  10. CLONAZEPAM. [Concomitant]
     Active Substance: CLONAZEPAM
     Indication: MUSCLE SPASMS
  11. AMPICILLIN [Concomitant]
     Active Substance: AMPICILLIN
     Route: 048
  12. DIFLUCAN [Concomitant]
     Active Substance: FLUCONAZOLE
  13. GABAPENTIN. [Concomitant]
     Active Substance: GABAPENTIN
  14. PANTOPRAZOLE [Concomitant]
     Active Substance: PANTOPRAZOLE SODIUM
  15. SUCRALFATE. [Concomitant]
     Active Substance: SUCRALFATE
  16. LEMTRADA [Concomitant]
     Active Substance: ALEMTUZUMAB
  17. LINZESS [Concomitant]
     Active Substance: LINACLOTIDE

REACTIONS (3)
  - Thrombotic stroke [Recovered/Resolved]
  - Amnesia [Unknown]
  - Confusional state [Not Recovered/Not Resolved]

NARRATIVE: CASE EVENT DATE: 201505
